FAERS Safety Report 9380623 (Version 3)
Quarter: 2013Q3

REPORT INFORMATION
  Report Type: Spontaneous
  Country: AT (occurrence: AT)
  Receive Date: 20130702
  Receipt Date: 20130717
  Transmission Date: 20140515
  Serious: Yes (Death)
  Sender: FDA-Public Use
  Company Number: AT-BRACCO-000123

PATIENT
  Age: 77 Year
  Sex: Female

DRUGS (1)
  1. PROHANCE [Suspect]
     Indication: INFLAMMATION
     Route: 042
     Dates: start: 20130624, end: 20130624

REACTIONS (1)
  - Cardiac arrest [Fatal]
